FAERS Safety Report 12654747 (Version 1)
Quarter: 2016Q3

REPORT INFORMATION
  Report Type: Spontaneous
  Country: US (occurrence: None)
  Receive Date: 20160815
  Receipt Date: 20160815
  Transmission Date: 20161109
  Serious: No
  Sender: FDA-Public Use
  Company Number: None

PATIENT
  Age: 77 Year
  Sex: Male
  Weight: 89.36 kg

DRUGS (3)
  1. B-50 B COMPLEX VITAMIN [Concomitant]
  2. ENALAPRIL MALEATE 20 MG TAB OCEANSIDE [Suspect]
     Active Substance: ENALAPRIL MALEATE
     Indication: HYPERTENSION
     Dosage: ENALAPRIL MALEATE 20 MG PILL - 1 PER DAY FOR 30 DAYS BY MOUTH
     Route: 048
     Dates: start: 20160722, end: 20160724
  3. OCUVITE ADULT SOT [Concomitant]

REACTIONS (3)
  - Dysphagia [None]
  - Product substitution issue [None]
  - Oropharyngeal pain [None]

NARRATIVE: CASE EVENT DATE: 20160722
